FAERS Safety Report 23147238 (Version 1)
Quarter: 2023Q4

REPORT INFORMATION
  Report Type: Spontaneous
  Country: US (occurrence: US)
  Receive Date: 20231106
  Receipt Date: 20231106
  Transmission Date: 20240110
  Serious: No
  Sender: FDA-Public Use
  Company Number: US-Santen Inc-2023-USA-009530

PATIENT
  Sex: Female

DRUGS (1)
  1. NATACYN [Suspect]
     Active Substance: NATAMYCIN
     Indication: Product used for unknown indication
     Route: 047

REACTIONS (4)
  - Eye irritation [Unknown]
  - Product residue present [Unknown]
  - Product storage error [Unknown]
  - Liquid product physical issue [Unknown]
